FAERS Safety Report 5831817-4 (Version None)
Quarter: 2008Q3

REPORT INFORMATION
  Report Type: 
  Country: None (occurrence: None)
  Receive Date: 20080804
  Receipt Date: 20080722
  Transmission Date: 20090109
  Serious: Yes (Other)
  Sender: FDA-Public Use
  Company Number: ES-ELI_LILLY_AND_COMPANY-ES200807004604

PATIENT
  Age: 40 Year
  Sex: Male

DRUGS (3)
  1. OLANSEK [Suspect]
     Indication: AGITATION
     Dosage: 10 MG, UNK
     Route: 030
  2. ALCOHOL [Concomitant]
  3. BENZODIAZEPINE DERIVATIVES [Concomitant]

REACTIONS (2)
  - RESPIRATORY DEPRESSION [None]
  - SEDATION [None]
